FAERS Safety Report 5644214-1 (Version None)
Quarter: 2008Q1

REPORT INFORMATION
  Report Type: 
  Country: None (occurrence: None)
  Receive Date: 20080229
  Receipt Date: 20080225
  Transmission Date: 20080703
  Serious: Yes (Other)
  Sender: FDA-Public Use
  Company Number: US-BAYER-200814886NA

PATIENT
  Age: 31 Year
  Sex: Female
  Weight: 91 kg

DRUGS (3)
  1. YAZ [Suspect]
     Indication: PREMENSTRUAL SYNDROME
     Route: 048
     Dates: start: 20080131, end: 20080222
  2. METFORMIN HCL [Concomitant]
     Indication: POLYCYSTIC OVARIES
     Route: 048
  3. KLONOPIN [Concomitant]

REACTIONS (4)
  - BLOOD PRESSURE INCREASED [None]
  - HEADACHE [None]
  - HEART RATE INCREASED [None]
  - MIGRAINE [None]
